FAERS Safety Report 10089063 (Version 1)
Quarter: 2014Q2

REPORT INFORMATION
  Report Type: Spontaneous
  Country: US (occurrence: None)
  Receive Date: 20140418
  Receipt Date: 20140418
  Transmission Date: 20141212
  Serious: Yes (Disabling)
  Sender: FDA-Public Use
  Company Number: None

PATIENT
  Age: 56 Year
  Sex: Female
  Weight: 80.74 kg

DRUGS (1)
  1. LIPITOR [Suspect]
     Indication: BLOOD CHOLESTEROL INCREASED
     Dosage: 1 TABLET, BY MOUTH
     Dates: start: 20140303, end: 20140401

REACTIONS (11)
  - Musculoskeletal pain [None]
  - Neck pain [None]
  - Back pain [None]
  - Asthenia [None]
  - Dizziness [None]
  - Confusional state [None]
  - Muscular weakness [None]
  - Pain [None]
  - Contusion [None]
  - Movement disorder [None]
  - Unevaluable event [None]
